FAERS Safety Report 4342603-9 (Version None)
Quarter: 2004Q1

REPORT INFORMATION
  Report Type: 
  Country: None (occurrence: None)
  Receive Date: 20040213
  Receipt Date: 20031118
  Transmission Date: 20041129
  Serious: Yes (Other)
  Sender: FDA-Public Use
  Company Number: 352053

PATIENT
  Age: 50 Year
  Sex: Male
  Weight: 86.2 kg

DRUGS (2)
  1. PEGASYS [Suspect]
     Indication: HEPATITIS C
     Dosage: 180 GRAM 1 PER WEEK SUBCUTANEOUS
     Route: 058
  2. COPEGUS [Suspect]
     Dosage: 600 MG 2 PER DAY ORAL
     Route: 048

REACTIONS (1)
  - THROMBOCYTOPENIA [None]
